FAERS Safety Report 8314679-5 (Version None)
Quarter: 2012Q2

REPORT INFORMATION
  Report Type: 
  Country: None (occurrence: None)
  Receive Date: 20120426
  Receipt Date: 20120419
  Transmission Date: 20120825
  Serious: Yes (Life-Threatening, Hospitalization)
  Sender: FDA-Public Use
  Company Number: DE-ELI_LILLY_AND_COMPANY-DE201203002906

PATIENT
  Age: 42 Year
  Sex: Male
  Weight: 136 kg

DRUGS (11)
  1. CYMBALTA [Suspect]
     Indication: DEPRESSION
     Dosage: 60 MG, UNKNOWN
     Route: 065
     Dates: start: 20090401
  2. ATACAND [Concomitant]
     Dosage: 32 MG, UNKNOWN
  3. PANTOPRAZOLE [Concomitant]
     Dosage: 40 MG, QD
  4. TRAZODONE HCL [Concomitant]
     Dosage: 100 MG, EACH EVENING
  5. SELENIUM [Concomitant]
  6. PANTOPRAZOLE [Concomitant]
     Dosage: 20 MG, QOD
  7. NAPROXEN [Concomitant]
     Dosage: 250 MG, PRN
  8. PANTOPRAZOLE [Concomitant]
     Dosage: 40 MG, UNKNOWN
     Route: 065
     Dates: start: 20100301
  9. CYMBALTA [Suspect]
     Dosage: 120 MG, EACH MORNING
     Route: 048
     Dates: start: 20101201
  10. NEBIDO [Concomitant]
     Dosage: UNK, OTHER
  11. JODETTEN [Concomitant]

REACTIONS (8)
  - FEAR [None]
  - DEPRESSION [None]
  - AGGRESSION [None]
  - TESTIS CANCER [None]
  - EMOTIONAL DISORDER [None]
  - ANGER [None]
  - HOSPITALISATION [None]
  - SUICIDAL IDEATION [None]
